FAERS Safety Report 9260780 (Version 1)
Quarter: 2013Q2

REPORT INFORMATION
  Report Type: Spontaneous
  Country: LB (occurrence: LB)
  Receive Date: 20130429
  Receipt Date: 20130429
  Transmission Date: 20140414
  Serious: Yes (Hospitalization)
  Sender: FDA-Public Use
  Company Number: LB-MYLANLABS-2013S1008713

PATIENT
  Age: 18 Year
  Sex: Female

DRUGS (3)
  1. METHOTREXATE [Suspect]
     Indication: SYSTEMIC LUPUS ERYTHEMATOSUS
     Dosage: 10MG WEEKLY
     Route: 065
  2. HYDROXYCHLOROQUINE [Suspect]
     Indication: SYSTEMIC LUPUS ERYTHEMATOSUS
     Dosage: 200MG DAILY
     Route: 065
  3. PREDNISONE [Suspect]
     Indication: SYSTEMIC LUPUS ERYTHEMATOSUS
     Dosage: 5MG
     Route: 065

REACTIONS (2)
  - Salmonella bacteraemia [Recovered/Resolved]
  - Arthritis bacterial [Recovered/Resolved]
